FAERS Safety Report 8186801-5 (Version None)
Quarter: 2012Q1

REPORT INFORMATION
  Report Type: 
  Country: None (occurrence: None)
  Receive Date: 20120306
  Receipt Date: 20120228
  Transmission Date: 20120608
  Serious: Yes (Hospitalization, Other)
  Sender: FDA-Public Use
  Company Number: GB-TEVA-325389ISR

PATIENT
  Age: 14 Year
  Sex: Female
  Weight: 57 kg

DRUGS (3)
  1. OLANZAPINE [Suspect]
     Indication: ABNORMAL BEHAVIOUR
     Route: 048
     Dates: start: 20120127, end: 20120201
  2. LACTULOSE [Concomitant]
     Indication: CONSTIPATION
     Dosage: 30 ML;
     Route: 048
     Dates: start: 20120127, end: 20120130
  3. LORAZEPAM [Concomitant]
     Indication: AGITATION
     Dosage: MAX 2MG/24 HOURS
     Route: 048
     Dates: start: 20120127, end: 20120130

REACTIONS (1)
  - CONVULSION [None]
